FAERS Safety Report 16022435 (Version 2)
Quarter: 2019Q2

REPORT INFORMATION
  Report Type: Report from Study
  Country: JP (occurrence: JP)
  Receive Date: 20190301
  Receipt Date: 20190412
  Transmission Date: 20190711
  Serious: Yes (Death, Hospitalization)
  Sender: FDA-Public Use
  Company Number: JP-ACTELION-A-CH2019-186923

PATIENT
  Age: 68 Year
  Sex: Female

DRUGS (12)
  1. BAYASPIRIN [Suspect]
     Active Substance: ASPIRIN
     Indication: MYOCARDIAL INFARCTION
     Dosage: 100 MG, QD
     Route: 048
  2. FEBURIC [Concomitant]
     Active Substance: FEBUXOSTAT
  3. FUROSEMIDE. [Concomitant]
     Active Substance: FUROSEMIDE
  4. NEXIUM [Concomitant]
     Active Substance: ESOMEPRAZOLE MAGNESIUM
  5. ATORVASTATINE [Concomitant]
     Active Substance: ATORVASTATIN
  6. ELIQUIS [Suspect]
     Active Substance: APIXABAN
     Indication: ATRIAL FIBRILLATION
     Dosage: 50 MG, QD
     Route: 048
     Dates: start: 20181203, end: 20190213
  7. LASIX [Concomitant]
     Active Substance: FUROSEMIDE
  8. OPSUMIT [Suspect]
     Active Substance: MACITENTAN
     Indication: PULMONARY HYPERTENSION
     Dosage: 10 MG, QD
     Route: 048
     Dates: start: 20181204, end: 20190213
  9. SAMSCA [Concomitant]
     Active Substance: TOLVAPTAN
  10. TRAMADOL. [Concomitant]
     Active Substance: TRAMADOL
  11. PREDONINE [Concomitant]
     Active Substance: PREDNISOLONE
  12. ACETAMINOPHEN. [Concomitant]
     Active Substance: ACETAMINOPHEN

REACTIONS (5)
  - Septic shock [Fatal]
  - Abdominal pain [Fatal]
  - Rectal perforation [Fatal]
  - Melaena [Fatal]
  - Constipation [Fatal]

NARRATIVE: CASE EVENT DATE: 201902
